FAERS Safety Report 13264266 (Version 1)
Quarter: 2017Q1

REPORT INFORMATION
  Report Type: Spontaneous
  Country: BR (occurrence: BR)
  Receive Date: 20170223
  Receipt Date: 20170223
  Transmission Date: 20170428
  Serious: Yes (Other)
  Sender: FDA-Public Use
  Company Number: BR-PFIZER INC-2017073946

PATIENT
  Age: 64 Year
  Sex: Female

DRUGS (2)
  1. XALATAN [Suspect]
     Active Substance: LATANOPROST
     Indication: INTRAOCULAR PRESSURE TEST ABNORMAL
     Dosage: 2 DROPS (1 DROP IN EACH EYE) 1X/DAY
     Route: 047
     Dates: start: 2012
  2. TIMOLOL. [Concomitant]
     Active Substance: TIMOLOL
     Indication: INTRAOCULAR PRESSURE TEST ABNORMAL
     Dosage: 1 DROP IN EACH EYE 1X/DAY
     Route: 047

REACTIONS (1)
  - Cataract [Unknown]
